FAERS Safety Report 8150914 (Version 2)
Quarter: 2012Q4

REPORT INFORMATION
  Report Type: 
  Country: US (occurrence: US)
  Receive Date: 20110922
  Receipt Date: 20121105
  Transmission Date: 20130627
  Serious: Yes (Hospitalization)
  Sender: FDA-Public Use
  Company Number: US-ASTRAZENECA-2009SE32550

PATIENT
  Age: 56 Year
  Sex: Female
  Weight: 75.3 kg

DRUGS (10)
  1. SEROQUEL [Suspect]
     Indication: DEPRESSION
     Route: 048
  2. SEROQUEL [Suspect]
     Indication: SLEEP DISORDER
     Route: 048
  3. SEROQUEL [Suspect]
     Indication: DEPRESSION
     Route: 048
     Dates: start: 2009
  4. SEROQUEL [Suspect]
     Indication: SLEEP DISORDER
     Route: 048
     Dates: start: 2009
  5. SEROQUEL [Suspect]
     Indication: DEPRESSION
     Route: 048
  6. SEROQUEL [Suspect]
     Indication: SLEEP DISORDER
     Route: 048
  7. XANEX [Concomitant]
     Indication: BIPOLAR DISORDER
  8. NORCO [Concomitant]
     Indication: PAIN IN EXTREMITY
  9. TYLENOL PM [Concomitant]
  10. KLONOPIN [Concomitant]

REACTIONS (17)
  - Periorbital contusion [Unknown]
  - Deformity [Unknown]
  - Convulsion [Unknown]
  - Self-injurious ideation [Unknown]
  - Anger [Unknown]
  - Tachyphrenia [Unknown]
  - Insomnia [Unknown]
  - Panic attack [Unknown]
  - Abnormal behaviour [Unknown]
  - Fall [Unknown]
  - Feeling abnormal [Unknown]
  - Feeling jittery [Unknown]
  - Intentional drug misuse [Unknown]
  - Impatience [Unknown]
  - Psychomotor hyperactivity [Unknown]
  - Irritability [Unknown]
  - Drug dose omission [Unknown]
